FAERS Safety Report 9281403 (Version 3)
Quarter: 2013Q3

REPORT INFORMATION
  Report Type: Spontaneous
  Country: CA (occurrence: CA)
  Receive Date: 20130509
  Receipt Date: 20130809
  Transmission Date: 20140515
  Serious: Yes (Death, Hospitalization)
  Sender: FDA-Public Use
  Company Number: CA-BAXTER-2013BAX016456

PATIENT
  Sex: Male

DRUGS (3)
  1. DIANEAL PD4 SOLUTION WITH 1.5% DEXTROSE AND 2.5 MEQ/L CALCIUM [Suspect]
     Indication: PERITONEAL DIALYSIS
     Dosage: EVERY NIGHT
     Route: 033
     Dates: start: 200902
  2. DIANEAL PD4 SOLUTION WITH 2.5% DEXTROSE AND 2.5 MEQ/L CALCIUM [Suspect]
     Indication: PERITONEAL DIALYSIS
     Dosage: EVERY NIGHT
     Route: 033
     Dates: start: 200902
  3. WARFARIN [Suspect]
     Indication: ANTICOAGULANT THERAPY
     Route: 065
     Dates: end: 201304

REACTIONS (5)
  - Death [Fatal]
  - Haemoglobin decreased [Recovering/Resolving]
  - Rectal haemorrhage [Recovering/Resolving]
  - Asthenia [Recovering/Resolving]
  - Aphagia [Recovering/Resolving]
